FAERS Safety Report 8480788-3 (Version None)
Quarter: 2012Q2

REPORT INFORMATION
  Report Type: 
  Country: None (occurrence: None)
  Receive Date: 20120626
  Receipt Date: 20120626
  Transmission Date: 20120825
  Serious: No
  Sender: FDA-Public Use
  Company Number: None

PATIENT
  Age: 51 Year
  Sex: Female

DRUGS (1)
  1. DOCETAXEL [Suspect]
     Indication: BREAST CANCER METASTATIC
     Dosage: 150 MG EVERY 3 WEEKS IV DRIP
     Route: 041
     Dates: start: 20120510, end: 20120621

REACTIONS (4)
  - INFUSION SITE ERYTHEMA [None]
  - SCAR [None]
  - OEDEMA PERIPHERAL [None]
  - CHEMICAL INJURY [None]
